FAERS Safety Report 9552427 (Version 2)
Quarter: 2014Q1

REPORT INFORMATION
  Report Type: Spontaneous
  Country: US (occurrence: None)
  Receive Date: 20130923
  Receipt Date: 20140117
  Transmission Date: 20141002
  Serious: Yes (Hospitalization)
  Sender: FDA-Public Use
  Company Number: 2013AP008234

PATIENT
  Age: 14 Year
  Sex: Female

DRUGS (10)
  1. ZOLPIDEM TARTRATE TABLETS [Suspect]
     Indication: INSOMNIA
  2. ZOLPIDEM TARTRATE TABLETS [Suspect]
     Indication: NIGHTMARE
  3. OLANZAPINE ORALLY DISINTEGRATING TABLETS [Suspect]
     Indication: HALLUCINATION, AUDITORY
  4. OLANZAPINE ORALLY DISINTEGRATING TABLETS [Suspect]
     Indication: ANXIETY
  5. MELATONIN [Suspect]
     Indication: INSOMNIA
  6. MELATONIN [Suspect]
     Indication: NIGHTMARE
  7. ESZOPICLONE [Suspect]
     Indication: INSOMNIA
  8. ESZOPICLONE [Suspect]
     Indication: NIGHTMARE
  9. DESMOPRESSIN [Concomitant]
  10. CITALOPRAM [Concomitant]

REACTIONS (8)
  - Anxiety [None]
  - Sleep terror [None]
  - Abnormal dreams [None]
  - Mental disorder [None]
  - Weight increased [None]
  - Paradoxical drug reaction [None]
  - Condition aggravated [None]
  - Mental disorder [None]
